FAERS Safety Report 8606697-4 (Version None)
Quarter: 2012Q3

REPORT INFORMATION
  Report Type: 
  Country: None (occurrence: None)
  Receive Date: 20120820
  Receipt Date: 20120810
  Transmission Date: 20120928
  Serious: Yes (Other)
  Sender: FDA-Public Use
  Company Number: CA-ROCHE-1101039

PATIENT
  Sex: Female
  Weight: 90.8 kg

DRUGS (13)
  1. ROACTEMRA [Suspect]
     Indication: RHEUMATOID ARTHRITIS
     Route: 042
     Dates: start: 20100621
  2. CALCIUM [Concomitant]
  3. COZAAR [Concomitant]
  4. DELATESTRYL [Concomitant]
  5. EFFEXOR [Concomitant]
  6. XANAX [Concomitant]
  7. TYLENOL [Concomitant]
  8. VITAMIN D [Concomitant]
  9. ZOCOR [Concomitant]
  10. ROACTEMRA [Suspect]
     Dates: start: 20110510
  11. ROACTEMRA [Suspect]
     Dates: start: 20120802
  12. SYNTHROID [Concomitant]
  13. DELESTROGEN [Concomitant]

REACTIONS (4)
  - RECTAL HAEMORRHAGE [None]
  - DIARRHOEA [None]
  - MYALGIA [None]
  - ABDOMINAL PAIN [None]
